FAERS Safety Report 5187440-0 (Version None)
Quarter: 2006Q4

REPORT INFORMATION
  Report Type: 
  Country: None (occurrence: None)
  Receive Date: 20061220
  Receipt Date: 20050627
  Transmission Date: 20070319
  Serious: No
  Sender: FDA-Public Use
  Company Number: US-AMGEN-US140174

PATIENT
  Sex: Female

DRUGS (5)
  1. ENBREL [Suspect]
     Indication: PSORIASIS
     Route: 058
     Dates: start: 20041101
  2. CALAN - SLOW RELEASE [Concomitant]
     Route: 048
     Dates: start: 20010101
  3. ACCUPRIL [Concomitant]
     Dates: start: 20010101
  4. XANAX [Concomitant]
     Route: 048
     Dates: start: 20030101
  5. PERCOCET [Concomitant]
     Route: 048
     Dates: start: 20010101

REACTIONS (2)
  - PARAESTHESIA [None]
  - PLATELET DISORDER [None]
